FAERS Safety Report 5504425-2 (Version None)
Quarter: 2007Q4

REPORT INFORMATION
  Report Type: 
  Country: None (occurrence: None)
  Receive Date: 20071101
  Receipt Date: 20071022
  Transmission Date: 20080405
  Serious: Yes (Death, Hospitalization, Other)
  Sender: FDA-Public Use
  Company Number: US-PFIZER INC-2007088404

PATIENT
  Sex: Male
  Weight: 106.6 kg

DRUGS (1)
  1. CELEBREX [Suspect]
     Indication: ARTHROPATHY
     Route: 048

REACTIONS (3)
  - DEATH [None]
  - FATIGUE [None]
  - LIVER DISORDER [None]
